FAERS Safety Report 8389268-7 (Version None)
Quarter: 2012Q2

REPORT INFORMATION
  Report Type: 
  Country: None (occurrence: None)
  Receive Date: 20120528
  Receipt Date: 20120524
  Transmission Date: 20120825
  Serious: Yes (Life-Threatening, Hospitalization, Other)
  Sender: FDA-Public Use
  Company Number: PHHY2008CA03439

PATIENT
  Sex: Female

DRUGS (21)
  1. SEROQUEL [Concomitant]
     Dosage: 150 MG, BID
  2. FLONASE [Concomitant]
     Dosage: 50 MG, BID (1 SPRAY IN EACH NOSTRIL, PRN)
  3. EYELUBE [Concomitant]
  4. SYNTHROID [Concomitant]
     Dosage: 0.125 MG, QD
     Route: 048
  5. ONE-ALPHA [Concomitant]
     Dosage: 0.5 UG, BID
  6. QUETIAPINE [Concomitant]
     Dosage: 50 MG, BID
     Route: 048
  7. LORAZEPAM [Concomitant]
  8. CODEINE SULFATE [Concomitant]
  9. BRONCHOPHAN FORTE DM [Concomitant]
     Dosage: 15 ML, QD
     Route: 048
  10. ATIVAN [Concomitant]
  11. CHEMOTHERAPEUTICS NOS [Concomitant]
  12. APO-LORAZEPAM [Concomitant]
     Dosage: 3 MG, QD
     Route: 048
  13. APO-ACETAMINOPHEN [Concomitant]
     Dosage: 450 MG, PRN (4-6 HR)
     Route: 048
  14. CLOBAZAM [Suspect]
     Dosage: 5 MG, 1/2 CO
  15. ARANESP [Concomitant]
     Dosage: (1ST AND 15TH OF EVERY MONTH)
     Route: 058
  16. CALCIUM [Concomitant]
     Dosage: 500 MG, QD
     Route: 048
  17. CLOZARIL [Suspect]
     Indication: SCHIZOPHRENIA, PARANOID TYPE
     Dosage: 100 MG, BID
     Route: 048
     Dates: start: 19970728
  18. NEXIUM [Concomitant]
     Dosage: 40 MG, BID
  19. OLIVE OIL [Concomitant]
     Dosage: 1-2 DROPS IN BOTH EAR
  20. SENNOSIDE [Concomitant]
     Dosage: 24 MG/H, QD
     Route: 048
  21. PROTOCOL FOR CONSTIPATION [Concomitant]

REACTIONS (17)
  - RENAL FAILURE [None]
  - TOXICITY TO VARIOUS AGENTS [None]
  - GASTRITIS [None]
  - HYPOTHYROIDISM [None]
  - CONSTIPATION [None]
  - NEUTROPHIL COUNT DECREASED [None]
  - DIABETES MELLITUS [None]
  - MULTIPLE MYELOMA [None]
  - DIABETES INSIPIDUS [None]
  - PNEUMONIA [None]
  - METABOLIC ENCEPHALOPATHY [None]
  - CONVULSION [None]
  - WHITE BLOOD CELL COUNT DECREASED [None]
  - PSYCHIATRIC DECOMPENSATION [None]
  - MYOCLONUS [None]
  - DYSLIPIDAEMIA [None]
  - ARTERIOVENOUS FISTULA SITE INFECTION [None]
